FAERS Safety Report 8998446 (Version 2)
Quarter: 2013Q1

REPORT INFORMATION
  Report Type: Spontaneous
  Country: US (occurrence: US)
  Receive Date: 20130103
  Receipt Date: 20130128
  Transmission Date: 20140127
  Serious: Yes (Other)
  Sender: FDA-Public Use
  Company Number: US-PFIZER INC-2012332454

PATIENT
  Age: 24 Year
  Sex: Female

DRUGS (9)
  1. MORPHINE SULFATE [Suspect]
     Indication: ABDOMINAL PAIN
     Dosage: UNK
     Route: 065
  2. HYDROCODONE W/ACETAMINOPHEN [Suspect]
     Indication: ABDOMINAL PAIN
     Dosage: UNK
     Route: 065
  3. CLONAZEPAM [Concomitant]
  4. LORAZEPAM [Concomitant]
  5. DIPHENOXYLATE W/ATROPINE SULFATE [Concomitant]
     Dosage: UNK
  6. SERTRALINE [Concomitant]
     Dosage: UNK
  7. FENOFIBRATE [Concomitant]
     Dosage: UNK
  8. METOPROLOL [Concomitant]
     Dosage: UNK
  9. LEVOTHYROXINE [Concomitant]
     Dosage: UNK

REACTIONS (1)
  - Narcotic bowel syndrome [Recovered/Resolved]
